FAERS Safety Report 5450040-9 (Version None)
Quarter: 2007Q3

REPORT INFORMATION
  Report Type: 
  Country: None (occurrence: None)
  Receive Date: 20070912
  Receipt Date: 20070904
  Transmission Date: 20080115
  Serious: Yes (Life-Threatening, Other)
  Sender: FDA-Public Use
  Company Number: BR-AVENTIS-200717949GDDC

PATIENT
  Age: 11 Month
  Sex: Male
  Weight: 10 kg

DRUGS (3)
  1. LANTUS [Suspect]
     Route: 064
  2. OPTIPEN (INSULIN PUMP) [Suspect]
     Route: 064
  3. LISPRO [Concomitant]
     Route: 064

REACTIONS (3)
  - DRUG EXPOSURE DURING PREGNANCY [None]
  - HYPOGLYCAEMIA NEONATAL [None]
  - RESPIRATORY ARREST [None]
